FAERS Safety Report 12232485 (Version 1)
Quarter: 2016Q2

REPORT INFORMATION
  Report Type: Spontaneous
  Country: GB (occurrence: GB)
  Receive Date: 20160401
  Receipt Date: 20160401
  Transmission Date: 20160815
  Serious: Yes (Death)
  Sender: FDA-Public Use
  Company Number: PHHY2016GB040305

PATIENT
  Age: 81 Year
  Sex: Female

DRUGS (2)
  1. AMIODARONE [Suspect]
     Active Substance: AMIODARONE
     Indication: ATRIAL FLUTTER
     Route: 065
  2. CLARITHROMYCIN. [Interacting]
     Active Substance: CLARITHROMYCIN
     Indication: PULMONARY SEPSIS
     Route: 065

REACTIONS (5)
  - Cardiac arrest [Fatal]
  - Electrocardiogram QT prolonged [Fatal]
  - Drug interaction [Fatal]
  - Ventricular extrasystoles [Fatal]
  - Ventricular tachycardia [Fatal]
